FAERS Safety Report 4556072-7 (Version None)
Quarter: 2005Q1

REPORT INFORMATION
  Report Type: 
  Country: None (occurrence: None)
  Receive Date: 20050119
  Receipt Date: 20050117
  Transmission Date: 20050727
  Serious: Yes (Life-Threatening, Hospitalization)
  Sender: FDA-Public Use
  Company Number: PHRM2005FR00544

PATIENT
  Age: 42 Year
  Sex: Male

DRUGS (9)
  1. LIORESAL [Suspect]
     Dosage: 50 MG/DAY
     Route: 048
     Dates: end: 20040409
  2. BACTRIM DS [Suspect]
     Route: 048
     Dates: start: 20031215, end: 20040409
  3. VIRACEPT [Suspect]
     Indication: HIV INFECTION
     Route: 048
     Dates: end: 20040409
  4. COMBIVIR [Suspect]
     Indication: HIV INFECTION
     Dosage: 1 DF, BID
     Route: 048
     Dates: start: 20030615, end: 20040409
  5. DEPAKENE [Suspect]
     Indication: EPILEPSY
     Dosage: 500 MG, BID
     Route: 048
     Dates: start: 20030915, end: 20040415
  6. COVERSYL [Suspect]
     Indication: ESSENTIAL HYPERTENSION
     Dosage: 4 MG/DAY
     Route: 048
     Dates: start: 20030615
  7. ASPEGIC 325 [Concomitant]
     Route: 048
     Dates: start: 20030601
  8. LYSANXIA [Suspect]
     Route: 048
     Dates: end: 20040409
  9. FUMAFER [Suspect]
     Route: 048
     Dates: end: 20040409

REACTIONS (5)
  - ALANINE AMINOTRANSFERASE INCREASED [None]
  - ASPARTATE AMINOTRANSFERASE INCREASED [None]
  - BLOOD LACTATE DEHYDROGENASE INCREASED [None]
  - BONE MARROW DEPRESSION [None]
  - PROTHROMBIN LEVEL DECREASED [None]
